FAERS Safety Report 16865940 (Version 1)
Quarter: 2019Q3

REPORT INFORMATION
  Report Type: Spontaneous
  Country: US (occurrence: US)
  Receive Date: 20190930
  Receipt Date: 20190930
  Transmission Date: 20191005
  Serious: No
  Sender: FDA-Public Use
  Company Number: US-ALLERGAN-1917375US

PATIENT
  Age: 44 Year
  Sex: Female

DRUGS (6)
  1. ADDERALL [Concomitant]
     Active Substance: AMPHETAMINE ASPARTATE\AMPHETAMINE SULFATE\DEXTROAMPHETAMINE SACCHARATE\DEXTROAMPHETAMINE SULFATE
     Dosage: UNK
     Dates: end: 20190413
  2. FLUOXETINE [Concomitant]
     Active Substance: FLUOXETINE HYDROCHLORIDE
     Dosage: UNK
  3. VRAYLAR [Suspect]
     Active Substance: CARIPRAZINE
     Dosage: 3 MG, QD
     Route: 048
  4. VRAYLAR [Suspect]
     Active Substance: CARIPRAZINE
     Dosage: 1.5 MG, QD
     Route: 048
     Dates: start: 20190207
  5. VITAMIN D3 [Concomitant]
     Active Substance: CHOLECALCIFEROL
     Indication: VITAMIN D DEFICIENCY
     Dosage: UNK
  6. VRAYLAR [Suspect]
     Active Substance: CARIPRAZINE
     Indication: BIPOLAR I DISORDER
     Dosage: 6 MG, QD
     Route: 048
     Dates: start: 20190227, end: 20190413

REACTIONS (3)
  - Anxiety [Unknown]
  - Restlessness [Unknown]
  - Akathisia [Recovered/Resolved]
